FAERS Safety Report 14955773 (Version 2)
Quarter: 2018Q2

REPORT INFORMATION
  Report Type: Spontaneous
  Country: PL (occurrence: PL)
  Receive Date: 20180531
  Receipt Date: 20180629
  Transmission Date: 20180711
  Serious: Yes (Other)
  Sender: FDA-Public Use
  Company Number: PL-ASTRAZENECA-2018SE69352

PATIENT
  Age: 64 Year
  Sex: Female
  Weight: 76 kg

DRUGS (4)
  1. TAMOXIFEN [Suspect]
     Active Substance: TAMOXIFEN
     Dosage: 20 MG DAILY NON AZ DRUG
     Route: 048
     Dates: start: 201009
  2. ZOLEDRONIC ACID [Concomitant]
     Active Substance: ZOLEDRONIC ACID
     Route: 042
     Dates: end: 201709
  3. FULVESTRANT. [Suspect]
     Active Substance: FULVESTRANT
     Route: 030
  4. RADIOTHERAPY [Concomitant]
     Active Substance: RADIATION THERAPY

REACTIONS (4)
  - Pathological fracture [Unknown]
  - Malignant neoplasm progression [Unknown]
  - Osteonecrosis of jaw [Unknown]
  - Metastases to spine [Unknown]

NARRATIVE: CASE EVENT DATE: 201507
